FAERS Safety Report 9881440 (Version 2)
Quarter: 2014Q1

REPORT INFORMATION
  Report Type: Spontaneous
  Country: US (occurrence: US)
  Receive Date: 20140207
  Receipt Date: 20140207
  Transmission Date: 20141002
  Serious: No
  Sender: FDA-Public Use
  Company Number: US-B.I. PHARMACEUTICALS,INC./RIDGEFIELD-2013-BI-27711BP

PATIENT
  Age: 66 Year
  Sex: Female
  Weight: 93 kg

DRUGS (9)
  1. COMBIVENT [Suspect]
     Indication: CHRONIC OBSTRUCTIVE PULMONARY DISEASE
     Dosage: STRENGTH: 20 MCG / 100 MCG; DAILY DOSE: 80 MCG/ 400 MCG
     Route: 055
     Dates: start: 201307, end: 201311
  2. SINGULAIR [Concomitant]
     Dosage: 10 MG
     Route: 048
  3. CRESTOR [Concomitant]
     Indication: BLOOD CHOLESTEROL INCREASED
     Route: 048
  4. METFORMIN [Concomitant]
     Indication: DIABETES MELLITUS
     Dosage: 1500 MG
     Route: 048
  5. LISINOPRIL [Concomitant]
     Indication: HYPERTENSION
     Dosage: 2.5 MG
     Route: 048
  6. DULERA INHALER [Concomitant]
     Route: 055
  7. AMITRIPTYLINE [Concomitant]
     Indication: RESTLESS LEGS SYNDROME
     Dosage: 10 MG
     Route: 048
  8. VERAPAMIL SR [Concomitant]
     Dosage: 360 MG
     Route: 048
  9. COMBIVENT CFC [Concomitant]
     Indication: CHRONIC OBSTRUCTIVE PULMONARY DISEASE
     Dosage: STRENGTH: 18MCG/103MCG; DAILY DOSE: 216MCG/1236MCG
     Route: 055

REACTIONS (2)
  - Chest discomfort [Not Recovered/Not Resolved]
  - Drug ineffective [Not Recovered/Not Resolved]
